FAERS Safety Report 8789945 (Version 3)
Quarter: 2013Q4

REPORT INFORMATION
  Report Type: Spontaneous
  Country: PH (occurrence: PH)
  Receive Date: 20120917
  Receipt Date: 20131105
  Transmission Date: 20140711
  Serious: Yes (Other)
  Sender: FDA-Public Use
  Company Number: PH-009507513-1208PHL010091

PATIENT
  Sex: 0

DRUGS (1)
  1. FOSAVANCE [Suspect]

REACTIONS (1)
  - Atypical femur fracture [Unknown]
